FAERS Safety Report 20903299 (Version 2)
Quarter: 2022Q2

REPORT INFORMATION
  Report Type: Report from Study
  Country: US (occurrence: US)
  Receive Date: 20220601
  Receipt Date: 20220609
  Transmission Date: 20220721
  Serious: Yes (Hospitalization, Other)
  Sender: FDA-Public Use
  Company Number: US-BRISTOL-MYERS SQUIBB COMPANY-2022-047002

PATIENT
  Age: 74 Year
  Sex: Male
  Weight: 95 kg

DRUGS (24)
  1. CARBOPLATIN [Suspect]
     Active Substance: CARBOPLATIN
     Indication: Non-small cell lung cancer
     Route: 065
     Dates: start: 20210709
  2. PACLITAXEL [Suspect]
     Active Substance: PACLITAXEL
     Indication: Non-small cell lung cancer
     Route: 065
     Dates: start: 20210709
  3. ASPIRIN [Concomitant]
     Active Substance: ASPIRIN
     Indication: Prophylaxis
     Dosage: DAILY; PER DAY?ONGOING
     Route: 048
     Dates: start: 2020
  4. FUROSEMIDE [Concomitant]
     Active Substance: FUROSEMIDE
     Indication: Product used for unknown indication
     Dosage: DAILY; PER DAY
     Route: 048
     Dates: start: 20210730
  5. BUPRENORPHINE [Concomitant]
     Active Substance: BUPRENORPHINE
     Indication: Product used for unknown indication
     Dosage: DAILY; PER DAY
     Route: 060
     Dates: start: 2010
  6. GABAPENTIN [Concomitant]
     Active Substance: GABAPENTIN
     Indication: Product used for unknown indication
     Dosage: DAILY; PER DAY
     Route: 048
     Dates: start: 20210110
  7. TAMSULOSIN [Concomitant]
     Active Substance: TAMSULOSIN
     Indication: Product used for unknown indication
     Dosage: DAILY; PER DAY
     Route: 048
     Dates: start: 20201210
  8. HYDRALAZINE [Concomitant]
     Active Substance: HYDRALAZINE HYDROCHLORIDE
     Indication: Product used for unknown indication
     Dosage: 3 TIMES PER DAY
     Route: 048
     Dates: start: 20201012
  9. EQUATE COMPLETE MULTIVITAMIN MEN 50+ [Concomitant]
     Indication: Prophylaxis
     Dosage: 1 DOSAGE FORM- 1 UNIT NOS?DAILY; PER DAY?ONGOING
     Route: 048
     Dates: start: 2021
  10. HYDROCHLOROTHIAZIDE\LOSARTAN [Concomitant]
     Active Substance: HYDROCHLOROTHIAZIDE\LOSARTAN
     Indication: Product used for unknown indication
     Dosage: 1 DOSAGE FORM- 1 UNIT NOS?DAILY; PER DAY?ONGOING
     Route: 048
     Dates: start: 20201101
  11. METFORMIN [Concomitant]
     Active Substance: METFORMIN HYDROCHLORIDE
     Indication: Product used for unknown indication
     Dosage: DAILY; PER DAY?ONGOING
     Route: 048
     Dates: start: 20210806
  12. TEMAZEPAM [Concomitant]
     Active Substance: TEMAZEPAM
     Indication: Product used for unknown indication
     Dosage: AS NEEDED
     Route: 048
     Dates: start: 20210820
  13. LORAZEPAM [Concomitant]
     Active Substance: LORAZEPAM
     Indication: Product used for unknown indication
     Dosage: AS NEEDED
     Route: 048
     Dates: start: 20210618
  14. VALTREX [Concomitant]
     Active Substance: VALACYCLOVIR HYDROCHLORIDE
     Indication: Prophylaxis
     Dosage: DAILY; PER DAY
     Route: 048
     Dates: start: 20210827
  15. ACETAMINOPHEN\HYDROCODONE [Concomitant]
     Active Substance: ACETAMINOPHEN\HYDROCODONE
     Indication: Product used for unknown indication
     Dosage: HYDROCODONE- 7.5 MG AND ACETAMINOPHEN- 325 MG?1 DOSAGE FORM- 1 UNIT NOS?EVERY 4 HOURS?ONGOING
     Route: 048
     Dates: start: 20210917
  16. BENZONATATE [Concomitant]
     Active Substance: BENZONATATE
     Indication: Product used for unknown indication
     Dosage: 3 TIMES PER DAY
     Route: 048
     Dates: start: 20211230
  17. ROBITUSSIN DM [Concomitant]
     Active Substance: DEXTROMETHORPHAN HYDROBROMIDE\GUAIFENESIN
     Indication: Product used for unknown indication
     Dosage: BD; TWICE PER DAY
     Route: 048
     Dates: start: 20220121
  18. PREDNISONE [Concomitant]
     Active Substance: PREDNISONE
     Indication: Product used for unknown indication
     Dosage: DAILY; PER DAY?ONGOING
     Route: 048
     Dates: start: 20220329
  19. ALBUTEROL [Concomitant]
     Active Substance: ALBUTEROL
     Indication: Product used for unknown indication
     Dosage: HFA INHALER?AS NEEDED?ONGOING
     Route: 055
     Dates: start: 2020
  20. ALBUTEROL [Concomitant]
     Active Substance: ALBUTEROL
     Dosage: NEBULIZER?AS NEEDED?ONGOING
     Route: 055
     Dates: start: 2020
  21. ATORVASTATIN [Concomitant]
     Active Substance: ATORVASTATIN
     Indication: Product used for unknown indication
     Dosage: DAILY; PER DAY?ONGOING
     Route: 048
     Dates: start: 2014
  22. CETIRIZINE HYDROCHLORIDE [Concomitant]
     Active Substance: CETIRIZINE HYDROCHLORIDE
     Indication: Product used for unknown indication
     Dosage: DAILY; PER DAY?ONGOING
     Route: 048
     Dates: start: 2020
  23. FLUTICASONE [Concomitant]
     Active Substance: FLUTICASONE
     Indication: Product used for unknown indication
     Dosage: INHALER?AS NEEDED?ONGOING
     Route: 055
     Dates: start: 2020
  24. FLUTICASONE [Concomitant]
     Active Substance: FLUTICASONE
     Dosage: AS NEEDED?ONGOING
     Route: 055
     Dates: start: 2020

REACTIONS (1)
  - Pneumonia [Not Recovered/Not Resolved]

NARRATIVE: CASE EVENT DATE: 20220518
